FAERS Safety Report 4510655-9 (Version None)
Quarter: 2004Q4

REPORT INFORMATION
  Report Type: 
  Country: None (occurrence: None)
  Receive Date: 20041122
  Receipt Date: 20041022
  Transmission Date: 20050328
  Serious: Yes (Hospitalization)
  Sender: FDA-Public Use
  Company Number: 9160

PATIENT
  Age: 11 Year
  Sex: Male

DRUGS (7)
  1. VINCRISTINE [Suspect]
     Indication: T-CELL LYMPHOMA
     Dosage: NI/165 MG FREQ UNK, IV
     Route: 042
  2. DEXAMETHASONE [Suspect]
     Indication: T-CELL LYMPHOMA
     Dosage: 4 MG FREQ UNK; PO
     Route: 048
  3. ASPARAGINASE [Concomitant]
  4. DAUNORUBICIN [Concomitant]
  5. PREDNISOLONE [Concomitant]
  6. RANITIDINE [Concomitant]
  7. CO-TRIMOXAZOLE [Concomitant]

REACTIONS (4)
  - CONDITION AGGRAVATED [None]
  - HYPONATRAEMIA [None]
  - INAPPROPRIATE ANTIDIURETIC HORMONE SECRETION [None]
  - NEUROPATHY PERIPHERAL [None]
